FAERS Safety Report 22005835 (Version 1)
Quarter: 2023Q1

REPORT INFORMATION
  Report Type: Spontaneous
  Country: US (occurrence: None)
  Receive Date: 20230216
  Receipt Date: 20230216
  Transmission Date: 20230417
  Serious: Yes (Hospitalization, Other)
  Sender: FDA-Public Use
  Company Number: None

PATIENT
  Age: 63 Year
  Sex: Female
  Weight: 47.7 kg

DRUGS (2)
  1. XGEVA [Suspect]
     Active Substance: DENOSUMAB
     Indication: Non-small cell lung cancer
     Dosage: OTHER QUANTITY : 1 INJECTION(S);?OTHER FREQUENCY : EVERY 4 WEEKS;?
     Route: 030
     Dates: start: 20131213, end: 20220522
  2. LORLATINIB [Concomitant]
     Active Substance: LORLATINIB

REACTIONS (2)
  - Osteonecrosis of jaw [None]
  - Gingival recession [None]

NARRATIVE: CASE EVENT DATE: 20220801
